FAERS Safety Report 7311402-8 (Version None)
Quarter: 2011Q1

REPORT INFORMATION
  Report Type: 
  Country: None (occurrence: None)
  Receive Date: 20110224
  Receipt Date: 20110222
  Transmission Date: 20110831
  Serious: Yes (Hospitalization)
  Sender: FDA-Public Use
  Company Number: IT-PFIZER INC-2006098546

PATIENT
  Age: 72 Year
  Sex: Male
  Weight: 80 kg

DRUGS (3)
  1. ALLOPURINOL [Concomitant]
     Route: 048
     Dates: start: 20060703
  2. LANSOPRAZOLE [Concomitant]
     Route: 048
     Dates: start: 20060706
  3. SUNITINIB MALATE [Suspect]
     Indication: METASTATIC RENAL CELL CARCINOMA
     Dosage: 50 MG, 1X/DAY
     Route: 048
     Dates: start: 20060606, end: 20060701

REACTIONS (1)
  - SUPRAVENTRICULAR TACHYCARDIA [None]
